FAERS Safety Report 6147112-2 (Version None)
Quarter: 2009Q2

REPORT INFORMATION
  Report Type: 
  Country: None (occurrence: None)
  Receive Date: 20090402
  Receipt Date: 20090320
  Transmission Date: 20091009
  Serious: Yes (Death, Hospitalization, Other)
  Sender: FDA-Public Use
  Company Number: BAYER CASE ID: 200828484GPV

PATIENT
  Age: 63 Year
  Sex: Male

DRUGS (3)
  1. FLUDARA [Suspect]
     Indication: B-CELL SMALL LYMPHOCYTIC LYMPHOMA
     Dosage: 70 MG/M2; ORAL
     Route: 048
     Dates: start: 20080312, end: 20080813
  2. CAMPATH [Suspect]
     Indication: B-CELL SMALL LYMPHOCYTIC LYMPHOMA
     Dosage: 30 MG, SUBCUTANEOUS
     Route: 058
     Dates: start: 20080312, end: 20080813
  3. CYCLOPHOSPHAMIDE [Suspect]
     Indication: B-CELL SMALL LYMPHOCYTIC LYMPHOMA
     Dosage: 400 MG, ORAL
     Route: 048
     Dates: start: 20080312, end: 20080813

REACTIONS (24)
  - ACUTE HEPATIC FAILURE [None]
  - ANION GAP INCREASED [None]
  - ASCITES [None]
  - CARDIAC FAILURE CONGESTIVE [None]
  - CD4 LYMPHOCYTES DECREASED [None]
  - CHRONIC LYMPHOCYTIC LEUKAEMIA TRANSFORMATION [None]
  - CYTOMEGALOVIRUS INFECTION [None]
  - DEPRESSED LEVEL OF CONSCIOUSNESS [None]
  - DRUG INEFFECTIVE [None]
  - GENERAL PHYSICAL HEALTH DETERIORATION [None]
  - HEPATOSPLENOMEGALY [None]
  - HYPOTHERMIA [None]
  - IMMUNOSUPPRESSION [None]
  - LEUKOPENIA [None]
  - METABOLIC ACIDOSIS [None]
  - NEUTROPENIA [None]
  - PLEURAL EFFUSION [None]
  - RENAL FAILURE [None]
  - RESPIRATORY ACIDOSIS [None]
  - RESPIRATORY ALKALOSIS [None]
  - RESPIRATORY FAILURE [None]
  - SEPTIC SHOCK [None]
  - TROPONIN INCREASED [None]
  - URINARY RETENTION [None]
